FAERS Safety Report 19393387 (Version 1)
Quarter: 2021Q2

REPORT INFORMATION
  Report Type: Spontaneous
  Country: US (occurrence: US)
  Receive Date: 20210608
  Receipt Date: 20210608
  Transmission Date: 20210717
  Serious: No
  Sender: FDA-Public Use
  Company Number: None

PATIENT
  Sex: Male
  Weight: 84.7 kg

DRUGS (1)
  1. LENALIDOMIDE [Suspect]
     Active Substance: LENALIDOMIDE

REACTIONS (8)
  - Aortic stenosis [None]
  - Cerebrovascular accident [None]
  - Facial paresis [None]
  - Facial paralysis [None]
  - Carotid artery stenosis [None]
  - Aphasia [None]
  - Arteriosclerosis [None]
  - Ischaemic cerebral infarction [None]
